FAERS Safety Report 4982932-9 (Version None)
Quarter: 2006Q2

REPORT INFORMATION
  Report Type: 
  Country: None (occurrence: None)
  Receive Date: 20060420
  Receipt Date: 20060413
  Transmission Date: 20061013
  Serious: Yes (Other)
  Sender: FDA-Public Use
  Company Number: 200611052BCC

PATIENT
  Age: 80 Year
  Sex: Male
  Weight: 76.2043 kg

DRUGS (2)
  1. ALEVE (CAPLET) [Suspect]
     Indication: HEADACHE
     Dosage: 440 MG, QD, ORAL
     Route: 048
     Dates: start: 20060221, end: 20060301
  2. ALEVE (CAPLET) [Suspect]
     Indication: SHOULDER PAIN
     Dosage: 440 MG, QD, ORAL
     Route: 048
     Dates: start: 20060221, end: 20060301

REACTIONS (1)
  - HYPERTENSION [None]
